FAERS Safety Report 6689801-7 (Version None)
Quarter: 2010Q2

REPORT INFORMATION
  Report Type: 
  Country: None (occurrence: None)
  Receive Date: 20100421
  Receipt Date: 20100407
  Transmission Date: 20101027
  Serious: Yes (Other)
  Sender: FDA-Public Use
  Company Number: US-RANBAXY-2010RR-33192

PATIENT
  Sex: Female

DRUGS (5)
  1. METFORMIN HCL [Suspect]
     Indication: DRUG USE FOR UNKNOWN INDICATION
     Dosage: 1000 MG, QD
     Route: 065
  2. LYRICA [Suspect]
     Indication: FIBROMYALGIA
     Dosage: 100 MG, QD
     Route: 065
     Dates: start: 20100205
  3. CYMBALTA [Suspect]
     Indication: FIBROMYALGIA
     Dosage: UNK
     Route: 065
     Dates: end: 20100205
  4. DIOVAN HCT [Suspect]
     Indication: DRUG USE FOR UNKNOWN INDICATION
     Route: 065
  5. TRICOR [Suspect]
     Indication: DRUG USE FOR UNKNOWN INDICATION
     Route: 065

REACTIONS (7)
  - DIABETES MELLITUS [None]
  - DIZZINESS [None]
  - DRUG INTERACTION [None]
  - HYPERTENSION [None]
  - OEDEMA [None]
  - THERAPEUTIC PRODUCT INEFFECTIVE [None]
  - WEIGHT INCREASED [None]
